FAERS Safety Report 5839216-6 (Version None)
Quarter: 2008Q3

REPORT INFORMATION
  Report Type: 
  Country: None (occurrence: None)
  Receive Date: 20080808
  Receipt Date: 20080728
  Transmission Date: 20090109
  Serious: Yes (Hospitalization)
  Sender: FDA-Public Use
  Company Number: US-PFIZER INC-2008062965

PATIENT
  Sex: Male

DRUGS (1)
  1. AROMASIN [Suspect]
     Indication: BREAST CANCER MALE
     Dates: start: 20050601, end: 20080601

REACTIONS (1)
  - TRANSIENT ISCHAEMIC ATTACK [None]
